FAERS Safety Report 16320368 (Version 1)
Quarter: 2019Q2

REPORT INFORMATION
  Report Type: Spontaneous
  Country: BR (occurrence: BR)
  Receive Date: 20190516
  Receipt Date: 20190516
  Transmission Date: 20190711
  Serious: Yes (Hospitalization)
  Sender: FDA-Public Use
  Company Number: BR-SA-2019SA133649

PATIENT
  Sex: Male
  Weight: 59 kg

DRUGS (4)
  1. RENAGEL [Suspect]
     Active Substance: SEVELAMER HYDROCHLORIDE
     Indication: CHRONIC KIDNEY DISEASE
     Dosage: 1 DF, BID [1 TABLET IN THE MORNING AND 1 TABLET AT LUNCH]
     Route: 048
     Dates: start: 2013, end: 201901
  2. NORIPURUM [Concomitant]
     Active Substance: IRON POLYMALTOSE
     Indication: ANAEMIA
     Dosage: NEEDED WHEN HEMODIALYSIS IS PERFORMED
     Route: 058
     Dates: start: 2017
  3. HEMAX [EPOETIN ALFA] [Concomitant]
     Indication: CHRONIC KIDNEY DISEASE
     Dosage: NEEDED WHEN HEMODIALYSIS IS PERFORMED
     Route: 058
     Dates: start: 2013
  4. CALCITRIOL. [Concomitant]
     Active Substance: CALCITRIOL
     Indication: CHRONIC KIDNEY DISEASE
     Dosage: 1 DF, QD
     Route: 048
     Dates: start: 2013

REACTIONS (1)
  - Anaemia [Unknown]
